FAERS Safety Report 8742614 (Version 2)
Quarter: 2013Q1

REPORT INFORMATION
  Report Type: Spontaneous
  Country: BR (occurrence: BR)
  Receive Date: 20120824
  Receipt Date: 20130206
  Transmission Date: 20140127
  Serious: Yes (Other)
  Sender: FDA-Public Use
  Company Number: PHHY2012BR072008

PATIENT
  Sex: Female
  Weight: 80 kg

DRUGS (8)
  1. TRILEPTAL [Suspect]
     Indication: ATONIC SEIZURES
     Dosage: 300 MG, UNK
     Route: 048
  2. TRILEPTAL [Suspect]
     Dosage: 600 MG, UNK
     Route: 048
  3. TRILEPTAL [Suspect]
     Dosage: 1800 MG, 1 TABLET IN MORNING AND 1 TABLET AT NIGHT OF EACH DOSAGE FORM (300 MG AND 600 MG)
     Route: 048
  4. TRILEPTAL [Suspect]
     Dosage: 1350 MG, HALF TABLET IN MORNING AND 1 TABLET AT NIGHT OF EACH DOSAGE FORM EACH (300 MG AND 600 MG)
     Route: 048
  5. TRILEPTAL [Suspect]
     Dosage: 1800 MG, 1 TABLET IN MORNING AND 1 TABLET AT NIGHT OF EACH DOSAGE FORM (300 MG AND 600 MG)
     Route: 048
  6. FRISIUM [Suspect]
     Indication: ATONIC SEIZURES
     Dosage: 20 MG, DAILY
     Route: 048
  7. AMATO [Suspect]
     Indication: ATONIC SEIZURES
     Dosage: 50 MG, Q12H
  8. AMATO [Suspect]
     Indication: MIGRAINE
     Dosage: 25 MG, Q12H

REACTIONS (9)
  - Epilepsy [Recovered/Resolved]
  - Pharyngitis [Recovered/Resolved]
  - Gastrointestinal infection [Recovered/Resolved]
  - Fall [Recovered/Resolved]
  - Migraine [Recovered/Resolved]
  - Weight decreased [Recovering/Resolving]
  - Malaise [Recovered/Resolved]
  - Depression [Recovered/Resolved]
  - Dizziness [Recovered/Resolved]
